FAERS Safety Report 5629856-1 (Version None)
Quarter: 2008Q1

REPORT INFORMATION
  Report Type: 
  Country: None (occurrence: None)
  Receive Date: 20080218
  Receipt Date: 20080214
  Transmission Date: 20080703
  Serious: Yes (Other)
  Sender: FDA-Public Use
  Company Number: US-ASTRAZENECA-2008UW03020

PATIENT
  Age: 68 Year
  Sex: Female
  Weight: 92.7 kg

DRUGS (1)
  1. TOPROL-XL [Suspect]
     Route: 048

REACTIONS (3)
  - ASTHMA [None]
  - CHEST PAIN [None]
  - DYSPNOEA [None]
